FAERS Safety Report 10432993 (Version 1)
Quarter: 2014Q3

REPORT INFORMATION
  Report Type: Spontaneous
  Country: US (occurrence: None)
  Receive Date: 20140904
  Receipt Date: 20140904
  Transmission Date: 20150326
  Serious: Yes (Other)
  Sender: FDA-Public Use
  Company Number: None

PATIENT
  Age: 59 Year
  Sex: Female
  Weight: 47.3 kg

DRUGS (1)
  1. METRONIDAZOLE GEL USP 0.75% [Suspect]
     Active Substance: METRONIDAZOLE
     Indication: VAGINITIS GARDNERELLA
     Dosage: 0.75% G170 1X DAILY VAGINALLY
     Route: 067
     Dates: start: 20140820, end: 20140823

REACTIONS (1)
  - Rash [None]

NARRATIVE: CASE EVENT DATE: 20140823
